FAERS Safety Report 10207712 (Version 3)
Quarter: 2018Q1

REPORT INFORMATION
  Report Type: Spontaneous
  Country: US (occurrence: US)
  Receive Date: 20140530
  Receipt Date: 20180322
  Transmission Date: 20180508
  Serious: Yes (Hospitalization, Other)
  Sender: FDA-Public Use
  Company Number: US-GLAXOSMITHKLINE-A1055988A

PATIENT
  Sex: Male

DRUGS (8)
  1. FLUTICASONE PROPIONATE+SALMETEROL XINAFOATE [Suspect]
     Active Substance: FLUTICASONE PROPIONATE\SALMETEROL XINAFOATE
     Indication: PRODUCT USED FOR UNKNOWN INDICATION
     Dosage: UNK
  2. AIRDUO RESPICLICK [Suspect]
     Active Substance: FLUTICASONE PROPIONATE\SALMETEROL XINAFOATE
     Indication: PRODUCT USED FOR UNKNOWN INDICATION
     Dosage: UNK
  3. VENTOLIN [Suspect]
     Active Substance: ALBUTEROL SULFATE
     Indication: ASTHMA
     Dosage: UNK UNK, Z
     Route: 055
  4. VENTOLIN [Suspect]
     Active Substance: ALBUTEROL SULFATE
     Dosage: 2 PUFF(S), UNK
  5. CETIRIZINE HCL [Suspect]
     Active Substance: CETIRIZINE HYDROCHLORIDE
     Dosage: UNK, U
     Route: 048
  6. VENTOLIN [Suspect]
     Active Substance: ALBUTEROL SULFATE
     Dosage: 2 PUFF(S), UNK
     Route: 055
  7. THEOPHYLLINE [Concomitant]
     Active Substance: THEOPHYLLINE ANHYDROUS
  8. LOSARTAN. [Concomitant]
     Active Substance: LOSARTAN

REACTIONS (14)
  - Gout [Unknown]
  - Rhinorrhoea [Recovering/Resolving]
  - Productive cough [Unknown]
  - Overdose [Unknown]
  - Eosinophil count increased [Not Recovered/Not Resolved]
  - Respiratory tract congestion [Recovering/Resolving]
  - Asthma [Recovered/Resolved]
  - Tremor [Not Recovered/Not Resolved]
  - Dizziness [Recovering/Resolving]
  - Tinnitus [Not Recovered/Not Resolved]
  - Dyspnoea [Unknown]
  - Lacrimation increased [Recovering/Resolving]
  - Sneezing [Recovering/Resolving]
  - Hypertension [Not Recovered/Not Resolved]

NARRATIVE: CASE EVENT DATE: 2008
